FAERS Safety Report 7212427-3 (Version None)
Quarter: 2011Q1

REPORT INFORMATION
  Report Type: 
  Country: None (occurrence: None)
  Receive Date: 20110106
  Receipt Date: 20101227
  Transmission Date: 20110831
  Serious: Yes (Hospitalization)
  Sender: FDA-Public Use
  Company Number: IL-SANOFI-AVENTIS-2010SA078285

PATIENT
  Age: 72 Year
  Sex: Female

DRUGS (7)
  1. TRITACE [Concomitant]
  2. BISOPROLOL [Concomitant]
  3. MULTAQ [Suspect]
     Route: 048
  4. FUSID [Concomitant]
  5. AEROVENT [Concomitant]
  6. LEVOTHYROXINE SODIUM [Concomitant]
  7. COUMADIN [Concomitant]

REACTIONS (1)
  - PULMONARY OEDEMA [None]
